FAERS Safety Report 7589457-5 (Version None)
Quarter: 2011Q3

REPORT INFORMATION
  Report Type: 
  Country: None (occurrence: None)
  Receive Date: 20110705
  Receipt Date: 20110623
  Transmission Date: 20111222
  Serious: Yes (Other)
  Sender: FDA-Public Use
  Company Number: GB-JNJFOC-20110611219

PATIENT
  Sex: Female

DRUGS (3)
  1. HALOPERIDOL [Suspect]
     Indication: PERSONALITY DISORDER
     Route: 065
  2. RISPERIDONE [Suspect]
     Indication: PERSONALITY DISORDER
     Route: 065
  3. CHLORPROMAZINE [Suspect]
     Indication: PERSONALITY DISORDER
     Route: 065

REACTIONS (3)
  - HUNGER [None]
  - BREAST CANCER [None]
  - WEIGHT INCREASED [None]
